FAERS Safety Report 8281017-6 (Version None)
Quarter: 2012Q2

REPORT INFORMATION
  Report Type: 
  Country: None (occurrence: None)
  Receive Date: 20120412
  Receipt Date: 20120327
  Transmission Date: 20120825
  Serious: Yes (Hospitalization)
  Sender: FDA-Public Use
  Company Number: CZ-BAXTER-2012BAX001069

PATIENT
  Sex: Male

DRUGS (6)
  1. EXTRANEAL [Suspect]
  2. PHYSIONEAL 40 GLUCOSE  1,36% W/V / 13,6 MG/ML [Suspect]
     Indication: DIABETIC NEPHROPATHY
     Route: 033
     Dates: start: 20111110
  3. PHYSIONEAL 40 GLUCOSE  2,27% W/V / 22,7 MG/ML [Suspect]
     Indication: DIABETIC NEPHROPATHY
     Route: 033
     Dates: start: 20111110
  4. EXTRANEAL [Suspect]
     Indication: DIABETIC NEPHROPATHY
     Route: 033
     Dates: start: 20111110
  5. PHYSIONEAL 40 GLUCOSE  1,36% W/V / 13,6 MG/ML [Suspect]
     Dates: start: 20111110
  6. PHYSIONEAL 40 GLUCOSE  2,27% W/V / 22,7 MG/ML [Suspect]

REACTIONS (4)
  - STAPHYLOCOCCUS TEST POSITIVE [None]
  - PERITONITIS BACTERIAL [None]
  - PERITONEAL DIALYSIS COMPLICATION [None]
  - WRONG TECHNIQUE IN DRUG USAGE PROCESS [None]
